FAERS Safety Report 21185752 (Version 3)
Quarter: 2022Q3

REPORT INFORMATION
  Report Type: Spontaneous
  Country: US (occurrence: US)
  Receive Date: 20220808
  Receipt Date: 20220911
  Transmission Date: 20221027
  Serious: Yes (Other)
  Sender: FDA-Public Use
  Company Number: US-SANOFI-01218359

PATIENT
  Age: 67 Year
  Sex: Female

DRUGS (2)
  1. LANTUS SOLOSTAR [Suspect]
     Active Substance: INSULIN GLARGINE
     Indication: Type 1 diabetes mellitus
     Dosage: 7 UNITS AM 7 UNITS PM, BID
  2. LANTUS SOLOSTAR [Suspect]
     Active Substance: INSULIN GLARGINE
     Dosage: UNK
     Dates: start: 2004

REACTIONS (5)
  - Diabetes mellitus inadequate control [Unknown]
  - Therapeutic response decreased [Unknown]
  - Visual impairment [Unknown]
  - Product storage error [Unknown]
  - Inappropriate schedule of product administration [Unknown]
